FAERS Safety Report 8881328 (Version 2)
Quarter: 2013Q2

REPORT INFORMATION
  Report Type: Spontaneous
  Country: US (occurrence: None)
  Receive Date: 20120426
  Receipt Date: 20120703
  Transmission Date: 20140414
  Serious: Yes (Other)
  Sender: FDA-Public Use
  Company Number: PHEH2011US011813

PATIENT
  Age: 51 Year
  Sex: Female
  Weight: 68 kg

DRUGS (5)
  1. GILENYA [Suspect]
     Indication: MULTIPLE SCLEROSIS
     Route: 048
     Dates: start: 20111102
  2. LISINOPRIL (LISINOPRIL) [Concomitant]
  3. ESTRACE (ESTRADIOL) [Concomitant]
  4. PROVIGIL (MODAFINIL) [Concomitant]
  5. ADVIL (MEFENAMIC ACID) [Concomitant]

REACTIONS (6)
  - Cough [None]
  - Dizziness [None]
  - Bronchitis [None]
  - Gastroenteritis viral [None]
  - Nausea [None]
  - Feeling hot [None]
